FAERS Safety Report 7145200-5 (Version None)
Quarter: 2010Q4

REPORT INFORMATION
  Report Type: 
  Country: None (occurrence: None)
  Receive Date: 20101124
  Receipt Date: 20101110
  Transmission Date: 20110411
  Serious: Yes (Hospitalization)
  Sender: FDA-Public Use
  Company Number: 2010-3015

PATIENT
  Age: 75 Year
  Sex: Female

DRUGS (1)
  1. APO-GO AMPOULES (APO-GO) (APOMORPHINE HYDROCHLORIDE) (APOMORPHINE HYDR [Suspect]
     Indication: PARKINSON'S DISEASE
     Dosage: (13 IN 24 HR), SUBCUTANEOUS
     Route: 058
     Dates: start: 20100222

REACTIONS (3)
  - HYPERKINESIA [None]
  - MUSCLE RIGIDITY [None]
  - SOMNOLENCE [None]
